FAERS Safety Report 6169241-X (Version None)
Quarter: 2009Q2

REPORT INFORMATION
  Report Type: 
  Country: None (occurrence: None)
  Receive Date: 20090424
  Receipt Date: 20090409
  Transmission Date: 20091009
  Serious: Yes (Hospitalization, Other)
  Sender: FDA-Public Use
  Company Number: 2009001101

PATIENT
  Age: 58 Year
  Sex: Female

DRUGS (5)
  1. TARCEVA [Suspect]
     Indication: LUNG ADENOCARCINOMA
     Dosage: ORAL
     Route: 048
     Dates: start: 20060501, end: 20070401
  2. PEMETREXED (PEMETREXED) [Suspect]
  3. SUNITINIB [Suspect]
     Indication: LUNG CANCER METASTATIC
     Dosage: (25 MG), ORAL
     Route: 048
     Dates: start: 20071201
  4. ESTROGEN REPLACEMENT THERAPY [Suspect]
     Indication: GAUCHER'S DISEASE
     Dosage: (60 IU)
  5. CISPLATIN [Suspect]
     Dates: start: 20070901, end: 20071101

REACTIONS (20)
  - ANAEMIA [None]
  - ARTHRALGIA [None]
  - CLOSTRIDIUM DIFFICILE COLITIS [None]
  - CONSTIPATION [None]
  - CONTUSION [None]
  - DERMATITIS ACNEIFORM [None]
  - DISEASE PROGRESSION [None]
  - DRUG TOXICITY [None]
  - FLANK PAIN [None]
  - GRANULOCYTOPENIA [None]
  - HEPATOSPLENOMEGALY [None]
  - LUNG ADENOCARCINOMA [None]
  - LUNG INFECTION [None]
  - METASTASES TO CENTRAL NERVOUS SYSTEM [None]
  - METASTASES TO KIDNEY [None]
  - METASTASES TO LYMPH NODES [None]
  - NAUSEA [None]
  - NEUTROPENIA [None]
  - THROMBOCYTOPENIA [None]
  - WHEEZING [None]
